FAERS Safety Report 17882738 (Version 2)
Quarter: 2020Q2

REPORT INFORMATION
  Report Type: Report from Study
  Country: None (occurrence: ES)
  Receive Date: 20200611
  Receipt Date: 20200615
  Transmission Date: 20200714
  Serious: Yes (Death, Other)
  Sender: FDA-Public Use
  Company Number: ES-ABBVIE-20K-144-3435761-00

PATIENT
  Age: 69 Year
  Sex: Male
  Weight: 96 kg

DRUGS (5)
  1. HIDROXICLOROQUINA SULFATO [Suspect]
     Active Substance: HYDROXYCHLOROQUINE SULFATE
     Indication: COVID-19
     Route: 048
     Dates: start: 20200316, end: 20200325
  2. AZITROMICINA [Suspect]
     Active Substance: AZITHROMYCIN DIHYDRATE
     Indication: COVID-19
     Route: 048
     Dates: start: 20200316, end: 20200318
  3. INTERFERON BETA-1B [Suspect]
     Active Substance: INTERFERON BETA-1B
     Indication: COVID-19
     Route: 058
     Dates: start: 20200316, end: 20200324
  4. LEVOFLOXACINO [Suspect]
     Active Substance: LEVOFLOXACIN
     Indication: COVID-19
     Route: 042
     Dates: start: 20200315, end: 20200322
  5. KALETRA [Suspect]
     Active Substance: LOPINAVIR\RITONAVIR
     Indication: COVID-19
     Dosage: KALETRA 200 /50 MG COMPRIMIDOS RECUBIERTOS CON PELICULA, 120 COMPRIMIDOS
     Route: 048
     Dates: start: 20200316, end: 20200324

REACTIONS (2)
  - Hyperbilirubinaemia [Recovered/Resolved]
  - COVID-19 [Fatal]

NARRATIVE: CASE EVENT DATE: 2020
